FAERS Safety Report 6715222-4 (Version None)
Quarter: 2010Q2

REPORT INFORMATION
  Report Type: 
  Country: None (occurrence: None)
  Receive Date: 20100507
  Receipt Date: 20100504
  Transmission Date: 20101027
  Serious: Yes (Death)
  Sender: FDA-Public Use
  Company Number: VE-BRISTOL-MYERS SQUIBB COMPANY-15091507

PATIENT
  Age: 53 Year
  Sex: Female

DRUGS (1)
  1. IXEMPRA KIT [Suspect]
     Dates: start: 20100101

REACTIONS (1)
  - RENAL FAILURE [None]
